FAERS Safety Report 11858086 (Version 1)
Quarter: 2015Q4

REPORT INFORMATION
  Report Type: Spontaneous
  Country: IT (occurrence: IT)
  Receive Date: 20151222
  Receipt Date: 20151222
  Transmission Date: 20160305
  Serious: Yes (Other)
  Sender: FDA-Public Use
  Company Number: IT-JNJFOC-20151215401

PATIENT
  Age: 59 Year
  Sex: Female

DRUGS (2)
  1. PENTACOL [Concomitant]
     Active Substance: MESALAMINE
     Route: 065
  2. CAELYX [Suspect]
     Active Substance: DOXORUBICIN HYDROCHLORIDE
     Indication: OVARIAN CANCER
     Route: 042
     Dates: start: 20150302, end: 20150427

REACTIONS (3)
  - Erythema [Recovering/Resolving]
  - Eczema [Recovering/Resolving]
  - Oedema peripheral [Recovering/Resolving]

NARRATIVE: CASE EVENT DATE: 20150516
